FAERS Safety Report 10176520 (Version 1)
Quarter: 2014Q2

REPORT INFORMATION
  Report Type: Spontaneous
  Country: FR (occurrence: FR)
  Receive Date: 20140516
  Receipt Date: 20140516
  Transmission Date: 20141212
  Serious: Yes (Hospitalization)
  Sender: FDA-Public Use
  Company Number: FR-SA-2014SA059095

PATIENT
  Age: 56 Year
  Sex: Female

DRUGS (12)
  1. EVOLTRA [Suspect]
     Indication: ACUTE LYMPHOCYTIC LEUKAEMIA
     Route: 042
     Dates: start: 20140408, end: 20140410
  2. INEXIUM [Suspect]
     Indication: PRODUCT USED FOR UNKNOWN INDICATION
     Route: 048
     Dates: start: 20140407, end: 20140411
  3. NOXAFIL [Suspect]
     Indication: PRODUCT USED FOR UNKNOWN INDICATION
     Route: 048
     Dates: start: 20140407, end: 20140411
  4. TOPALGIC [Suspect]
     Indication: PRODUCT USED FOR UNKNOWN INDICATION
     Route: 048
     Dates: start: 20140407, end: 20140411
  5. IMOVANE [Concomitant]
     Route: 048
     Dates: start: 20140407
  6. LEXOMIL [Concomitant]
     Route: 048
     Dates: start: 20140407, end: 20140409
  7. ALLOPURINOL [Concomitant]
     Route: 048
     Dates: start: 20140407, end: 20140409
  8. SPRYCEL [Concomitant]
     Dates: start: 20140407, end: 20140411
  9. SPRYCEL [Concomitant]
     Dates: start: 20140414
  10. DEXAMETHASONE [Concomitant]
     Dates: start: 20140408
  11. MITOXANTRONE [Concomitant]
     Dates: start: 20140410
  12. ETOPOSIDE [Concomitant]
     Dates: start: 20140410

REACTIONS (3)
  - Cell death [Recovering/Resolving]
  - Aspartate aminotransferase increased [Recovered/Resolved]
  - Alanine aminotransferase increased [Recovering/Resolving]
